FAERS Safety Report 9361886 (Version 4)
Quarter: 2014Q2

REPORT INFORMATION
  Report Type: Other
  Country: JP (occurrence: JP)
  Receive Date: 20130621
  Receipt Date: 20140521
  Transmission Date: 20141212
  Serious: Yes (Hospitalization, Other)
  Sender: FDA-Public Use
  Company Number: JP-ACTELION-A-CH2013-84594

PATIENT
  Age: 48 Year
  Sex: Female

DRUGS (6)
  1. TRACLEER [Suspect]
     Indication: PULMONARY ARTERIAL HYPERTENSION
     Dosage: UNK
     Route: 048
     Dates: start: 2006, end: 201012
  2. AMBRISENTAN [Suspect]
     Indication: PULMONARY ARTERIAL HYPERTENSION
     Dosage: UNK
     Route: 048
     Dates: start: 201101, end: 201206
  3. BERAPROST [Concomitant]
  4. SILDENAFIL [Concomitant]
  5. EPOPROSTENOL [Concomitant]
     Dosage: UNK
     Dates: start: 2008
  6. FUROSEMIDE [Concomitant]

REACTIONS (21)
  - Drug-induced liver injury [Recovering/Resolving]
  - Pyrexia [Recovering/Resolving]
  - Autoimmune hepatitis [Recovering/Resolving]
  - Biopsy liver abnormal [Recovering/Resolving]
  - Thrombocytopenia [Recovering/Resolving]
  - Platelet count decreased [Recovering/Resolving]
  - Syncope [Unknown]
  - Hepatosplenomegaly [Recovering/Resolving]
  - Abdominal lymphadenopathy [Recovering/Resolving]
  - Biliary tract disorder [Recovering/Resolving]
  - Liver function test abnormal [Recovered/Resolved]
  - Alanine aminotransferase increased [Recovered/Resolved]
  - Aspartate aminotransferase increased [Recovered/Resolved]
  - Blood alkaline phosphatase increased [Recovered/Resolved]
  - Biopsy bone marrow [Unknown]
  - Condition aggravated [Unknown]
  - Syncope [Unknown]
  - Interleukin-2 receptor increased [Unknown]
  - Hepatosplenomegaly [Unknown]
  - Lymphadenopathy [Unknown]
  - Megakaryocytes increased [Unknown]
